FAERS Safety Report 18042550 (Version 1)
Quarter: 2020Q3

REPORT INFORMATION
  Report Type: Spontaneous
  Country: US (occurrence: US)
  Receive Date: 20200716
  Receipt Date: 20200716
  Transmission Date: 20201103
  Serious: Yes (Hospitalization)
  Sender: FDA-Public Use
  Company Number: None

PATIENT
  Age: 36 Year
  Sex: Male

DRUGS (1)
  1. SEVOFLURANE (SEVOFLURANE LIQUID, INHL) [Suspect]
     Active Substance: SEVOFLURANE
     Indication: SHOULDER ARTHROPLASTY
     Dates: start: 20190325, end: 20190325

REACTIONS (1)
  - Hyperthermia malignant [None]

NARRATIVE: CASE EVENT DATE: 20190325
